FAERS Safety Report 8100722-5 (Version None)
Quarter: 2012Q1

REPORT INFORMATION
  Report Type: 
  Country: None (occurrence: None)
  Receive Date: 20120129
  Receipt Date: 20111117
  Transmission Date: 20120608
  Serious: No
  Sender: FDA-Public Use
  Company Number: US-ABBOTT-11P-163-0875178-00

PATIENT
  Age: 48 Year
  Sex: Female

DRUGS (2)
  1. HUMIRA [Suspect]
     Indication: PSORIASIS
  2. HUMIRA [Suspect]
     Dates: start: 20110801

REACTIONS (6)
  - MUSCULOSKELETAL PAIN [None]
  - ARTHRALGIA [None]
  - PSORIASIS [None]
  - PAIN [None]
  - POOR QUALITY DRUG ADMINISTERED [None]
  - OEDEMA PERIPHERAL [None]
